FAERS Safety Report 6907399-2 (Version None)
Quarter: 2010Q3

REPORT INFORMATION
  Report Type: 
  Country: None (occurrence: None)
  Receive Date: 20100805
  Receipt Date: 20100727
  Transmission Date: 20110219
  Serious: Yes (Death, Other)
  Sender: FDA-Public Use
  Company Number: US-SHIRE-SPV1-2010-01355

PATIENT
  Age: 55 Year
  Sex: Male

DRUGS (1)
  1. ADDERALL XR 10 [Suspect]
     Indication: PRODUCT USED FOR UNKNOWN INDICATION
     Dosage: UNK, ONE DOSE (11 CAPSULES)

REACTIONS (1)
  - COMPLETED SUICIDE [None]
